FAERS Safety Report 24217414 (Version 3)
Quarter: 2024Q3

REPORT INFORMATION
  Report Type: Spontaneous
  Country: US (occurrence: US)
  Receive Date: 20240816
  Receipt Date: 20240925
  Transmission Date: 20241017
  Serious: Yes (Other)
  Sender: PFIZER
  Company Number: US-PFIZER INC-2020000965

PATIENT
  Age: 69 Year
  Sex: Female
  Weight: 56.25 kg

DRUGS (2)
  1. PREMARIN [Suspect]
     Active Substance: ESTROGENS, CONJUGATED
     Indication: Atrophic vulvovaginitis
     Dosage: UNK UNK, 2X/WEEK
     Route: 067
     Dates: start: 20181231
  2. PREMARIN [Suspect]
     Active Substance: ESTROGENS, CONJUGATED
     Dosage: INSERT 0.5 APPLICATOR(S) FUL, 2X/WEEK
     Route: 067
     Dates: start: 20200714

REACTIONS (4)
  - Spinal column injury [Unknown]
  - Muscle disorder [Unknown]
  - Intentional product use issue [Unknown]
  - Off label use [Unknown]

NARRATIVE: CASE EVENT DATE: 20200714
